FAERS Safety Report 25569031 (Version 1)
Quarter: 2025Q3

REPORT INFORMATION
  Report Type: Spontaneous
  Country: US (occurrence: US)
  Receive Date: 20250716
  Receipt Date: 20250716
  Transmission Date: 20251020
  Serious: Yes (Other)
  Sender: NOVO NORDISK
  Company Number: US-NOVOPROD-1278995

PATIENT
  Age: 57 Year
  Sex: Female
  Weight: 90.718 kg

DRUGS (12)
  1. OZEMPIC [Suspect]
     Active Substance: SEMAGLUTIDE
     Indication: Type 2 diabetes mellitus
     Dosage: 0.25 MG, QW
     Route: 058
     Dates: start: 20200916, end: 20210322
  2. FERROUS SULFATE [Concomitant]
     Active Substance: FERROUS SULFATE
     Indication: Iron deficiency
     Dates: start: 20201116
  3. LEVOTHYROXINE [Concomitant]
     Active Substance: LEVOTHYROXINE
     Indication: Thyroid disorder
     Dates: start: 20200217
  4. METOPROLOL [Concomitant]
     Active Substance: METOPROLOL
     Indication: Blood pressure abnormal
     Dates: start: 20180122
  5. ATORVASTATIN [Concomitant]
     Active Substance: ATORVASTATIN
     Indication: Blood cholesterol abnormal
     Dates: start: 20180205
  6. MONTELUKAST [Concomitant]
     Active Substance: MONTELUKAST
     Indication: Chronic obstructive pulmonary disease
     Dates: start: 20191217
  7. MONTELUKAST [Concomitant]
     Active Substance: MONTELUKAST
     Indication: Asthma
  8. ZOLPIDEM [Concomitant]
     Active Substance: ZOLPIDEM TARTRATE
     Indication: Insomnia
     Dates: start: 20190603
  9. CALCIUM [Concomitant]
     Active Substance: CALCIUM
     Indication: Ill-defined disorder
     Dates: start: 20180101
  10. POTASSIUM [Concomitant]
     Active Substance: POTASSIUM
     Indication: Ill-defined disorder
     Dates: start: 20180101
  11. VITAMIN D3 [Concomitant]
     Active Substance: CHOLECALCIFEROL
     Indication: Ill-defined disorder
     Dates: start: 20180101
  12. VITAMINS NOS [Concomitant]
     Active Substance: VITAMINS
     Indication: Ill-defined disorder
     Dates: start: 20180101

REACTIONS (2)
  - Impaired gastric emptying [Not Recovered/Not Resolved]
  - Off label use [Unknown]

NARRATIVE: CASE EVENT DATE: 20200916
